FAERS Safety Report 20893048 (Version 1)
Quarter: 2022Q2

REPORT INFORMATION
  Report Type: Spontaneous
  Country: DE (occurrence: DE)
  Receive Date: 20220531
  Receipt Date: 20220531
  Transmission Date: 20220721
  Serious: Yes (Other)
  Sender: FDA-Public Use
  Company Number: DE-AMGEN-DEUNI2022080797

PATIENT
  Age: 52 Year
  Sex: Male
  Weight: 61 kg

DRUGS (19)
  1. LEUCOVORIN [Suspect]
     Active Substance: LEUCOVORIN
     Indication: Colorectal cancer metastatic
     Dosage: 696 MILLIGRAM
     Route: 065
     Dates: start: 20201014
  2. LEUCOVORIN [Suspect]
     Active Substance: LEUCOVORIN
     Indication: Product used for unknown indication
     Dosage: 700 MILLIGRAM
     Route: 065
     Dates: start: 20201125
  3. LEUCOVORIN [Suspect]
     Active Substance: LEUCOVORIN
     Dosage: 750 MILLIGRAM
     Route: 065
     Dates: start: 20220406
  4. IRINOTECAN [Suspect]
     Active Substance: IRINOTECAN
     Indication: Colorectal cancer metastatic
     Dosage: 313 MILLIGRAM
     Route: 065
     Dates: start: 20201014
  5. IRINOTECAN [Suspect]
     Active Substance: IRINOTECAN
     Indication: Product used for unknown indication
     Dosage: 336 MILLIGRAM
     Route: 065
     Dates: start: 20220406
  6. FLUOROURACIL [Suspect]
     Active Substance: FLUOROURACIL
     Indication: Product used for unknown indication
     Dosage: 4176 MILLIGRAM
     Route: 042
     Dates: start: 20201014
  7. FLUOROURACIL [Suspect]
     Active Substance: FLUOROURACIL
     Indication: Colorectal cancer metastatic
     Dosage: 696 MILLIGRAM
     Route: 040
     Dates: start: 20201014
  8. FLUOROURACIL [Suspect]
     Active Substance: FLUOROURACIL
     Dosage: 700 MILLIGRAM
     Route: 040
     Dates: start: 20201125
  9. FLUOROURACIL [Suspect]
     Active Substance: FLUOROURACIL
     Dosage: 4180 MILLIGRAM
     Route: 042
     Dates: start: 20201125
  10. FLUOROURACIL [Suspect]
     Active Substance: FLUOROURACIL
     Dosage: 750 MILLIGRAM
     Route: 040
     Dates: start: 20220406
  11. FLUOROURACIL [Suspect]
     Active Substance: FLUOROURACIL
     Dosage: 4500 MILLIGRAM
     Route: 065
     Dates: start: 20220406
  12. VECTIBIX [Suspect]
     Active Substance: PANITUMUMAB
     Indication: Product used for unknown indication
     Dosage: 366 MILLIGRAM
     Route: 042
     Dates: start: 20201014
  13. VECTIBIX [Suspect]
     Active Substance: PANITUMUMAB
     Indication: Colorectal cancer metastatic
     Dosage: 370 MILLIGRAM
     Route: 042
     Dates: start: 20201125
  14. VECTIBIX [Suspect]
     Active Substance: PANITUMUMAB
     Dosage: 440 MILLIGRAM
     Route: 042
     Dates: start: 20220406
  15. ERYTHROMYCIN RATIOPHARM [Concomitant]
     Indication: Rash
     Dosage: 100 GRAM, ONCE A DAY (50 GRAM, TWO TIMES A DAY)
     Route: 062
     Dates: start: 20210111
  16. SODERM [Concomitant]
     Indication: Rash
     Dosage: 2 UNK, ONCE A DAY (1.22 UNK, TWO TIMES A DAY)
     Route: 062
     Dates: start: 20210111
  17. DOXYCYCLIN RATIOPHARM [Concomitant]
     Indication: Rash
     Dosage: 100 MILLIGRAM
     Route: 048
     Dates: start: 20211027
  18. INNOHEP [Concomitant]
     Active Substance: TINZAPARIN SODIUM
     Indication: Product used for unknown indication
     Dosage: 2000 INTERNATIONAL UNIT, ONCE A DAY
     Route: 058
     Dates: start: 20210414
  19. CALCIUM\CHOLECALCIFEROL [Concomitant]
     Active Substance: CALCIUM\CHOLECALCIFEROL
     Indication: Product used for unknown indication
     Dosage: 1 UNK, ONCE A DAY
     Route: 048
     Dates: start: 20210609

REACTIONS (2)
  - Dermatitis bullous [Unknown]
  - Rash [Unknown]

NARRATIVE: CASE EVENT DATE: 20220406
